FAERS Safety Report 16405239 (Version 1)
Quarter: 2019Q2

REPORT INFORMATION
  Report Type: Spontaneous
  Country: NL (occurrence: DE)
  Receive Date: 20190607
  Receipt Date: 20190607
  Transmission Date: 20190711
  Serious: Yes (Hospitalization, Other)
  Sender: FDA-Public Use
  Company Number: DE-FRESENIUS KABI-FK201906144

PATIENT
  Sex: Male

DRUGS (7)
  1. PEMBROLIZUMAB. [Suspect]
     Active Substance: PEMBROLIZUMAB
     Indication: ADENOCARCINOMA
     Dosage: 200 MILLIGRAM, CYCLICAL (REPETITION ON DAY 22)
     Route: 065
     Dates: start: 201901, end: 20190213
  2. PEMBROLIZUMAB. [Suspect]
     Active Substance: PEMBROLIZUMAB
     Dosage: 200 MILLIGRAM, CYCLICAL
     Route: 065
     Dates: start: 201902, end: 2019
  3. DENOSUMAB [Suspect]
     Active Substance: DENOSUMAB
     Indication: PRODUCT USED FOR UNKNOWN INDICATION
     Dosage: 120 MILLIGRAM, EVERY 4 WEEKS
     Route: 065
     Dates: start: 201810
  4. CARBOPLATIN (MANUFACTURER UNKNOWN) [Suspect]
     Active Substance: CARBOPLATIN
     Indication: PRODUCT USED FOR UNKNOWN INDICATION
     Dosage: UNK, CYCLICAL
     Route: 065
     Dates: start: 201810
  5. PEMBROLIZUMAB. [Suspect]
     Active Substance: PEMBROLIZUMAB
     Dosage: 200 MILLIGRAM, CYCLICAL (NEW CYCLE STARTED ON DAY 22)
     Route: 065
     Dates: start: 201810, end: 201812
  6. PEMETREXED DISODIUM [Suspect]
     Active Substance: PEMETREXED DISODIUM
     Indication: PRODUCT USED FOR UNKNOWN INDICATION
     Dosage: 500 MG/M2 ON DAY 1, CYCLICAL (REPETITION ON DAY 22).
     Route: 065
     Dates: start: 201901
  7. PEMETREXED DISODIUM [Suspect]
     Active Substance: PEMETREXED DISODIUM
     Dosage: 500 MILLIGRAM/SQ. METER, CYCLICAL(NEW CYCLE STARTED ON DAY 22)
     Route: 065
     Dates: start: 201810, end: 201812

REACTIONS (1)
  - Tubulointerstitial nephritis [Unknown]
